FAERS Safety Report 7198681-5 (Version None)
Quarter: 2010Q4

REPORT INFORMATION
  Report Type: 
  Country: None (occurrence: None)
  Receive Date: 20101227
  Receipt Date: 20101216
  Transmission Date: 20110411
  Serious: Yes (Hospitalization)
  Sender: FDA-Public Use
  Company Number: US-JNJFOC-20101206573

PATIENT
  Age: 62 Year
  Sex: Female

DRUGS (3)
  1. REMICADE [Suspect]
     Indication: COLITIS ULCERATIVE
     Dosage: DUE FOR WEEK 6
     Route: 042
  2. ACYCLOVIR [Concomitant]
     Indication: INFLAMMATION
     Route: 048
  3. NORVASC [Concomitant]
     Indication: BLOOD PRESSURE
     Route: 048

REACTIONS (3)
  - FREQUENT BOWEL MOVEMENTS [None]
  - INFLUENZA LIKE ILLNESS [None]
  - MUSCLE SPASMS [None]
